FAERS Safety Report 6555024-5 (Version None)
Quarter: 2010Q1

REPORT INFORMATION
  Report Type: 
  Country: None (occurrence: None)
  Receive Date: 20100126
  Receipt Date: 20100126
  Transmission Date: 20100710
  Serious: Yes (Disabling)
  Sender: FDA-Public Use
  Company Number: None

PATIENT
  Age: 30 Year
  Sex: Male
  Weight: 79.3795 kg

DRUGS (1)
  1. MOTRIN [Suspect]
     Indication: MYALGIA
     Dosage: 1 CAPLET EVERY 6 HOURS
     Dates: start: 20100109, end: 20100113

REACTIONS (6)
  - ARTHRALGIA [None]
  - BACK PAIN [None]
  - DEHYDRATION [None]
  - DIARRHOEA [None]
  - MUSCLE INJURY [None]
  - PRODUCT QUALITY ISSUE [None]
